FAERS Safety Report 6127193-2 (Version None)
Quarter: 2009Q1

REPORT INFORMATION
  Report Type: 
  Country: None (occurrence: None)
  Receive Date: 20090320
  Receipt Date: 20090306
  Transmission Date: 20090719
  Serious: Yes (Hospitalization)
  Sender: FDA-Public Use
  Company Number: IN-BAUSCH-2009BL001057

PATIENT
  Age: 26 Year
  Sex: Male

DRUGS (1)
  1. CIPROFLOXACIN [Suspect]
     Indication: DIARRHOEA
     Route: 048
     Dates: start: 20070101

REACTIONS (4)
  - CHOLESTASIS [None]
  - HEPATOMEGALY [None]
  - HERPES ZOSTER OPHTHALMIC [None]
  - RASH [None]
